FAERS Safety Report 7500305-1 (Version None)
Quarter: 2011Q2

REPORT INFORMATION
  Report Type: 
  Country: None (occurrence: None)
  Receive Date: 20110517
  Receipt Date: 20110503
  Transmission Date: 20111010
  Serious: Yes (Hospitalization)
  Sender: FDA-Public Use
  Company Number: 1000020821

PATIENT
  Age: 78 Year
  Sex: Female

DRUGS (8)
  1. ASPIRIN (ACETYLSALICYLIC ACID) (25 MILLIGRAM, TABLETS) (ACETYLSALICYLI [Concomitant]
  2. DIPIRIDAMOL (DIPYRIDAMOLE) (DIPYRIDAMOLE) [Concomitant]
  3. METOPROLOC (METOPROLOL) (METOPROLOL) [Concomitant]
  4. PANTOPRAZOLE (PANTOPRAZOLE) (PANTOPRAZOLE) [Concomitant]
  5. NITROGLYCERINE (GLYCERYL TRINITRATE) (POULTICE OR PATCH) (GLYCERYL TRI [Concomitant]
  6. ESCITALOPRAM [Suspect]
     Indication: DEPRESSION
     Dosage: 10 MG, (10 MG, 1 IN 1 D)
  7. ESCITALOPRAM [Suspect]
     Indication: ANXIETY
     Dosage: 10 MG, (10 MG, 1 IN 1 D)
  8. INSULIN (INSULIN) (INSULIN) [Concomitant]

REACTIONS (12)
  - DISORIENTATION [None]
  - MOTOR DYSFUNCTION [None]
  - DEMENTIA [None]
  - PARKINSONISM [None]
  - CEREBRAL ATROPHY [None]
  - CEREBRAL ISCHAEMIA [None]
  - HYPOMETABOLISM [None]
  - COGNITIVE DISORDER [None]
  - GAIT DISTURBANCE [None]
  - MYOCLONUS [None]
  - DYSKINESIA [None]
  - DIABETIC NEUROPATHY [None]
